FAERS Safety Report 5253333-3 (Version None)
Quarter: 2007Q1

REPORT INFORMATION
  Report Type: 
  Country: None (occurrence: None)
  Receive Date: 20070301
  Receipt Date: 20070219
  Transmission Date: 20070707
  Serious: Yes (Hospitalization)
  Sender: FDA-Public Use
  Company Number: HQWYE170220FEB07

PATIENT
  Sex: Male

DRUGS (6)
  1. AMIODARONE HCL [Suspect]
     Indication: ATRIAL FLUTTER
     Dosage: TWO AMPOULE BOLUS (10 MINUTES)
     Route: 042
     Dates: start: 20070207, end: 20070207
  2. AMIODARONE HCL [Suspect]
     Indication: ATRIAL FIBRILLATION
     Dosage: INFUSION TUBE OF THREE AMPOULES (^SEVERAL MINUTES^)
     Route: 042
     Dates: start: 20070207, end: 20070207
  3. ACETYLSALICYLIC ACID SRT [Concomitant]
  4. INSULIN HUMAN INJECTION, ISOPHANE [Concomitant]
  5. FRAXIPARINE [Concomitant]
  6. PRESTARIUM [Concomitant]

REACTIONS (8)
  - ABDOMINAL PAIN [None]
  - BLOOD PRESSURE DECREASED [None]
  - CARDIOMYOPATHY [None]
  - DYSPNOEA [None]
  - PULMONARY EMBOLISM [None]
  - RESPIRATORY ARREST [None]
  - RESTLESSNESS [None]
  - VOMITING [None]
